FAERS Safety Report 18685152 (Version 1)
Quarter: 2020Q4

REPORT INFORMATION
  Report Type: Spontaneous
  Country: GB (occurrence: GB)
  Receive Date: 20201230
  Receipt Date: 20201230
  Transmission Date: 20210114
  Serious: Yes (Other)
  Sender: FDA-Public Use
  Company Number: GB-MYLANLABS-2020M1105252

PATIENT
  Age: 59 Year
  Sex: Female
  Weight: 90 kg

DRUGS (20)
  1. OPTILAST [Concomitant]
     Dosage: 2 DOSAGE FORM, QD
     Dates: start: 20160112
  2. MOMETASONE [Concomitant]
     Active Substance: MOMETASONE
     Dosage: TWO SPRAYS ONCE OR TWICE DAILY
     Dates: start: 20160112
  3. NAPROXEN. [Suspect]
     Active Substance: NAPROXEN
     Indication: PRODUCT USED FOR UNKNOWN INDICATION
     Dosage: AFTER FOOD
     Dates: start: 20200914
  4. ESTRADIOL. [Concomitant]
     Active Substance: ESTRADIOL
     Dosage: EVERY NIGHT FOR 2 WEEKS, THEN USE TWO N...
     Dates: start: 20180828
  5. OXYPRO [Concomitant]
     Active Substance: OXYCODONE HYDROCHLORIDE
     Dosage: 1 DOSAGE FORM
     Dates: start: 20200110
  6. FLUTICASONE PROPIONATE. [Concomitant]
     Active Substance: FLUTICASONE PROPIONATE
     Dosage: 2 DOSAGE FORM, QD
     Route: 055
     Dates: start: 20160112
  7. FELODIPINE. [Concomitant]
     Active Substance: FELODIPINE
     Dosage: 1 DOSAGE FORM, QD
     Dates: start: 20170425
  8. LOTRIDERM [Concomitant]
     Active Substance: BETAMETHASONE DIPROPIONATE\CLOTRIMAZOLE
     Dosage: APPLY
     Dates: start: 20200204
  9. AMITRIPTYLINE HYDROCHLORIDE. [Concomitant]
     Active Substance: AMITRIPTYLINE HYDROCHLORIDE
     Dosage: TAKE BETWEEN 1 AND 3 AT NIGHT
     Dates: start: 20181004
  10. MONTELUKAST [Concomitant]
     Active Substance: MONTELUKAST SODIUM
     Dosage: AT NIGHT
     Dates: start: 20160112
  11. MACROGOL [Concomitant]
     Active Substance: POLYETHYLENE GLYCOLS
     Dosage: 1-2 SACHETS DAILY
     Dates: start: 20181023
  12. TERBUTALINE [Concomitant]
     Active Substance: TERBUTALINE
     Dosage: 1 DOSAGE FORM
     Route: 055
     Dates: start: 20160112
  13. OMEPRAZOLE. [Concomitant]
     Active Substance: OMEPRAZOLE
     Dosage: ONE IN THE MORNING AND TWO IN THE EVENING
     Dates: start: 20170818
  14. ETORICOXIB. [Concomitant]
     Active Substance: ETORICOXIB
     Dosage: 1 DOSAGE FORM, QD
     Dates: start: 20200928, end: 20201125
  15. ATORVASTATIN [Concomitant]
     Active Substance: ATORVASTATIN
     Dosage: 1 DOSAGE FORM, QD
     Dates: start: 20160112
  16. DERMOL                             /01330701/ [Concomitant]
     Dosage: USE AS A SOAP SUBSTITUTE OR AS A LEAVE-ON APPLI...
     Dates: start: 20200204
  17. CETIRIZINE [Concomitant]
     Active Substance: CETIRIZINE HYDROCHLORIDE
     Dosage: 1 DOSAGE FORM, QD
     Dates: start: 20160112
  18. TRAMADOL. [Concomitant]
     Active Substance: TRAMADOL
     Dosage: TAKE 1-2 TABLETS 2-3 TIMES A WEEK WHEN REQUIRED
     Dates: start: 20190812
  19. MEBEVERINE HYDROCHLORIDE [Concomitant]
     Active Substance: MEBEVERINE HYDROCHLORIDE
     Dosage: PREFERABLY 20 MINUTES BEF...
     Dates: start: 20160112
  20. ADCAL                              /07357001/ [Concomitant]
     Active Substance: CALCIUM CARBONATE
     Dosage: 2 DOSAGE FORM, QD
     Dates: start: 20160224

REACTIONS (2)
  - Mouth ulceration [Recovering/Resolving]
  - Nausea [Unknown]

NARRATIVE: CASE EVENT DATE: 20201125
